FAERS Safety Report 6010245-5 (Version None)
Quarter: 2008Q4

REPORT INFORMATION
  Report Type: 
  Country: None (occurrence: None)
  Receive Date: 20081218
  Receipt Date: 20080624
  Transmission Date: 20090506
  Serious: No
  Sender: FDA-Public Use
  Company Number: A0709976A

PATIENT
  Age: 48 Year
  Sex: Female

DRUGS (3)
  1. FLONASE [Suspect]
     Route: 045
  2. FLUTICASONE PROPIONATE [Suspect]
     Route: 045
  3. NO CONCURRENT MEDICATION [Concomitant]

REACTIONS (7)
  - EYE PAIN [None]
  - HEADACHE [None]
  - HYPOAESTHESIA FACIAL [None]
  - NAUSEA [None]
  - PAIN [None]
  - PARAESTHESIA [None]
  - PRODUCT QUALITY ISSUE [None]
